FAERS Safety Report 8165646-6 (Version None)
Quarter: 2012Q1

REPORT INFORMATION
  Report Type: 
  Country: None (occurrence: None)
  Receive Date: 20120223
  Receipt Date: 20120223
  Transmission Date: 20120608
  Serious: Yes (Life-Threatening, Other)
  Sender: FDA-Public Use
  Company Number: None

PATIENT
  Sex: Female
  Weight: 90.7194 kg

DRUGS (1)
  1. CIPROFLOXACIN [Suspect]
     Dosage: 2X 500 MG DAILY 10 DAYS
     Dates: start: 20120127, end: 20120130

REACTIONS (9)
  - SPEECH DISORDER [None]
  - FEELING ABNORMAL [None]
  - THINKING ABNORMAL [None]
  - FIBROMYALGIA [None]
  - HEART RATE INCREASED [None]
  - TENDON DISORDER [None]
  - MUSCLE DISORDER [None]
  - CONFUSIONAL STATE [None]
  - CONDITION AGGRAVATED [None]
